FAERS Safety Report 5748877-1 (Version None)
Quarter: 2008Q2

REPORT INFORMATION
  Report Type: 
  Country: None (occurrence: None)
  Receive Date: 20080522
  Receipt Date: 20080506
  Transmission Date: 20081010
  Serious: Yes (Hospitalization)
  Sender: FDA-Public Use
  Company Number: 2008US000163

PATIENT
  Age: 75 Year
  Sex: Female
  Weight: 104.3 kg

DRUGS (9)
  1. AMEVIVE [Suspect]
     Indication: PSORIASIS
     Dosage: 15 MG, WEEKLY, INTARMUSCULAR
     Route: 030
     Dates: start: 20030717, end: 20031002
  2. SYNTHROID [Concomitant]
  3. GABAPENTIN [Concomitant]
  4. GLUCOPHAGE [Concomitant]
  5. HYDROCHLOROTHIAZIDE W/TRIAMTERENE [Concomitant]
  6. MELOXICAM [Concomitant]
  7. ALLOPURINOL [Concomitant]
  8. VICODIN [Concomitant]
  9. LANOXICAPS (DIGOXIN) [Concomitant]

REACTIONS (10)
  - ARTHRALGIA [None]
  - ATELECTASIS [None]
  - BLOOD CREATINE PHOSPHOKINASE INCREASED [None]
  - BLOOD CREATINE PHOSPHOKINASE MB INCREASED [None]
  - BLOOD PRESSURE INCREASED [None]
  - BLOOD THYROID STIMULATING HORMONE ABNORMAL [None]
  - CARDIOMEGALY [None]
  - PNEUMONIA [None]
  - RENAL FAILURE ACUTE [None]
  - URINARY TRACT INFECTION [None]
